FAERS Safety Report 7351257-9 (Version None)
Quarter: 2011Q1

REPORT INFORMATION
  Report Type: 
  Country: None (occurrence: None)
  Receive Date: 20110304
  Receipt Date: 20110217
  Transmission Date: 20110831
  Serious: Yes (Hospitalization, Disabling, Other)
  Sender: FDA-Public Use
  Company Number: ALA_01803_2011

PATIENT
  Sex: Male

DRUGS (64)
  1. REGLAN [Suspect]
     Indication: IRRITABLE BOWEL SYNDROME
     Dosage: 10 MG AC/HS
     Dates: start: 19900101, end: 20070807
  2. TETRABENAZINE [Concomitant]
  3. ROPINIROLE HYDROCHLORIDE [Concomitant]
  4. AMOXICILLIN SODIUM W/CLAVULANATE POTASSIUM [Concomitant]
  5. BUPROPION HYDROCHLORIDE [Concomitant]
  6. KETOCONAZOLE [Concomitant]
  7. ZYPREXA [Concomitant]
  8. DIPHENHYDRAMINE [Concomitant]
  9. WARFARIN SODIUM [Concomitant]
  10. ALBUTEROL [Concomitant]
  11. LEVOFLOXACIN [Concomitant]
  12. ASPIRIN [Concomitant]
  13. MONTELUKAST SODIUM [Concomitant]
  14. TETRACAINE POLYGYL STERILE OPHTHALMIC SOLUTION [Concomitant]
  15. RESERPINE [Concomitant]
  16. MINOCYCLINE HCL [Concomitant]
  17. FLECAINIDE ACETATE [Concomitant]
  18. FLUNISOLIDE [Concomitant]
  19. ALEVE [Concomitant]
  20. AMANTADINE HCL [Concomitant]
  21. TYLENOL W/ CODEINE NO. 3 [Concomitant]
  22. URSODIOL [Concomitant]
  23. FORMOTEROL FUMARATE [Concomitant]
  24. TIOTROPIUM [Concomitant]
  25. AZITHROMYCIN [Concomitant]
  26. MODAFINIL [Concomitant]
  27. RABEPRAZOLE SODIUM [Concomitant]
  28. NASACORT [Concomitant]
  29. DIGOXIN [Concomitant]
  30. MOMETASONE FUROATE [Concomitant]
  31. DAILY MULTIVITAMIN [Concomitant]
  32. REGULAR INSULIN [Concomitant]
  33. SIMVASTATIN [Concomitant]
  34. PHENYLEPHRINE [Concomitant]
  35. IMIPRAMINE [Concomitant]
  36. FEXOFENADINE HCL [Concomitant]
  37. TETANUS VACCINE [Concomitant]
  38. LEVOTHYROXINE SODIUM [Concomitant]
  39. CALCIUM CARBONATE [Concomitant]
  40. CARBIDOPA AND LEVODOPA [Concomitant]
  41. PREDNISONE [Concomitant]
  42. ENTACAPONE [Concomitant]
  43. TRIOUCANUDE [Concomitant]
  44. IPRATROPIUM BROMIDE [Concomitant]
  45. NIACIN [Concomitant]
  46. DEFEROXAMINE MESYLATE [Concomitant]
  47. SOTALOL HCL [Concomitant]
  48. RANITIDINE HYDROCHLORIDE [Concomitant]
  49. CHOLESTYRAMINE [Concomitant]
  50. VANCERIL [Concomitant]
  51. CITALOPRAM HYDROBROMIDE [Concomitant]
  52. TRIHEXYPHENIDYL HCL [Concomitant]
  53. LOVASTATIN [Concomitant]
  54. PANTOPRAZOLE [Concomitant]
  55. LORATADINE [Concomitant]
  56. METRONIDAZOLE [Concomitant]
  57. MAXAIR [Concomitant]
  58. ERYTHROMYCIN [Concomitant]
  59. QUETIAPINE [Concomitant]
  60. FLUDROCORTISONE ACETATE [Concomitant]
  61. GLIPIZIDE [Concomitant]
  62. GUAIFENESIN [Concomitant]
  63. BENZTROPINE MESYLATE [Concomitant]
  64. RABIES VACCINE [Concomitant]

REACTIONS (38)
  - MASTICATION DISORDER [None]
  - DRY MOUTH [None]
  - RESTLESSNESS [None]
  - MUSCLE RIGIDITY [None]
  - RESTLESS LEGS SYNDROME [None]
  - PROTRUSION TONGUE [None]
  - PARKINSON'S DISEASE [None]
  - ECONOMIC PROBLEM [None]
  - GAIT DISTURBANCE [None]
  - COUGH [None]
  - WEIGHT DECREASED [None]
  - WITHDRAWAL SYNDROME [None]
  - DEMENTIA [None]
  - PARKINSONISM [None]
  - BRADYKINESIA [None]
  - DYSPHAGIA [None]
  - CEREBRAL ATROPHY [None]
  - MUSCLE TWITCHING [None]
  - AUTOIMMUNE DISORDER [None]
  - TARDIVE DYSKINESIA [None]
  - INJURY [None]
  - TONGUE DISORDER [None]
  - PAIN IN EXTREMITY [None]
  - ANXIETY [None]
  - CHOREA [None]
  - ATRIAL FIBRILLATION [None]
  - ATRIAL FLUTTER [None]
  - HUNTINGTON'S DISEASE [None]
  - UNEVALUABLE EVENT [None]
  - DYSKINESIA [None]
  - GRUNTING [None]
  - RETCHING [None]
  - HIV INFECTION [None]
  - AKATHISIA [None]
  - EMOTIONAL DISORDER [None]
  - CHOKING [None]
  - MOANING [None]
  - CEREBRAL ISCHAEMIA [None]
